FAERS Safety Report 6395999-0 (Version None)
Quarter: 2009Q4

REPORT INFORMATION
  Report Type: 
  Country: None (occurrence: None)
  Receive Date: 20091009
  Receipt Date: 20091002
  Transmission Date: 20100525
  Serious: Yes (Other)
  Sender: FDA-Public Use
  Company Number: CHPA2009DE19753

PATIENT
  Sex: Female

DRUGS (2)
  1. SCOPODERM TTS (NCH) [Suspect]
     Indication: PROPHYLAXIS
     Dosage: UNK
     Route: 062
  2. SCOPODERM TTS (NCH) [Suspect]
     Dosage: UNK
     Route: 062
     Dates: start: 20090801, end: 20090801

REACTIONS (3)
  - CONFUSIONAL STATE [None]
  - NAUSEA [None]
  - VOMITING [None]
